FAERS Safety Report 7895583-3 (Version None)
Quarter: 2011Q4

REPORT INFORMATION
  Report Type: 
  Country: None (occurrence: None)
  Receive Date: 20111106
  Receipt Date: 20110829
  Transmission Date: 20120403
  Serious: No
  Sender: FDA-Public Use
  Company Number: US-AMGEN-USASP2011044442

PATIENT
  Age: 11 Year
  Sex: Female

DRUGS (1)
  1. ENBREL [Suspect]
     Indication: JUVENILE ARTHRITIS
     Dosage: 0.65 MG, 2 TIMES/WK
     Dates: start: 20060101

REACTIONS (6)
  - COUGH [None]
  - ARTHRALGIA [None]
  - GAIT DISTURBANCE [None]
  - PARANASAL SINUS HYPERSECRETION [None]
  - OROPHARYNGEAL PAIN [None]
  - JOINT SWELLING [None]
